FAERS Safety Report 4938560-4 (Version None)
Quarter: 2006Q1

REPORT INFORMATION
  Report Type: 
  Country: None (occurrence: None)
  Receive Date: 20060306
  Receipt Date: 20060217
  Transmission Date: 20060701
  Serious: Yes (Hospitalization)
  Sender: FDA-Public Use
  Company Number: US200602003683

PATIENT
  Age: 60 Year
  Sex: Female

DRUGS (6)
  1. CYMBALTA [Suspect]
     Indication: DIABETIC NEUROPATHY
     Dosage: 60 MG, DAILY (1/D), UNK
     Dates: start: 20060101, end: 20060201
  2. TAMBOCOR                  /GFR/ (FLECAINIDE ACETATE) [Concomitant]
  3. NEURONTIN [Concomitant]
  4. ALLOPURINOL [Concomitant]
  5. PROBENECID [Concomitant]
  6. ACTOS [Concomitant]

REACTIONS (2)
  - LEUKOPENIA [None]
  - NEUTROPENIA [None]
